FAERS Safety Report 5025291-8 (Version None)
Quarter: 2006Q2

REPORT INFORMATION
  Report Type: 
  Country: None (occurrence: None)
  Receive Date: 20060426
  Receipt Date: 20060123
  Transmission Date: 20061013
  Serious: Yes (Other)
  Sender: FDA-Public Use
  Company Number: 2005164516

PATIENT
  Age: 77 Year
  Sex: Male
  Weight: 104.3273 kg

DRUGS (20)
  1. LYRICA [Suspect]
     Indication: NEUROPATHY PERIPHERAL
     Dosage: 225 MG (75 MG, 3 IN 1 D), ORAL
     Route: 048
     Dates: start: 20051101
  2. SYNTHROID [Concomitant]
  3. ASPIRIN [Concomitant]
  4. NITRO PATCH (GLYCERYL TRINITRATE) [Concomitant]
  5. LANOXIN [Concomitant]
  6. FOLIC ACID [Concomitant]
  7. ZESTRIL [Concomitant]
  8. DITROPAN [Concomitant]
  9. LOPID [Concomitant]
  10. LIPITOR [Concomitant]
  11. GLIPIZIDE [Concomitant]
  12. LABETALOL HCL [Concomitant]
  13. ATIVAN [Concomitant]
  14. NORVASC [Concomitant]
  15. ZANTAC [Concomitant]
  16. FERROUS SULFATE TAB [Concomitant]
  17. FISH  OIL (FISH OIL) [Concomitant]
  18. VITAMIN B12 [Concomitant]
  19. VITAMIN B6 (VITAMIN B6) [Concomitant]
  20. VITAMIN B1 TAB [Concomitant]

REACTIONS (1)
  - DRUG INEFFECTIVE [None]
